FAERS Safety Report 6720492-2 (Version None)
Quarter: 2010Q2

REPORT INFORMATION
  Report Type: 
  Country: None (occurrence: None)
  Receive Date: 20100506
  Receipt Date: 20100422
  Transmission Date: 20101027
  Serious: Yes (Other)
  Sender: FDA-Public Use
  Company Number: 167-20484-09111489

PATIENT
  Sex: Male

DRUGS (11)
  1. INNOHEP [Suspect]
     Dosage: SEE IMAGE
     Dates: start: 20051229, end: 20060215
  2. INNOHEP [Suspect]
     Dosage: SEE IMAGE
     Dates: start: 20050213
  3. INNOHEP [Suspect]
     Dosage: SEE IMAGE
     Dates: start: 20051207
  4. WARFARIN SODIUM [Concomitant]
  5. DIGOXIN [Concomitant]
  6. ENALAPRIL MALEATE [Concomitant]
  7. BETAMETHASONE [Concomitant]
  8. AMOXICILLIN [Concomitant]
  9. GENTAMICIN [Concomitant]
  10. KAPAKE (CODEINE PHOSPHATE, PARACETAMOL) [Concomitant]
  11. SYNTOMETRINE (OXYTOCIN, ERGOMETRINE) [Concomitant]

REACTIONS (2)
  - MATERNAL DRUGS AFFECTING FOETUS [None]
  - PREMATURE BABY [None]
